FAERS Safety Report 12449148 (Version 1)
Quarter: 2016Q2

REPORT INFORMATION
  Report Type: Spontaneous
  Country: US (occurrence: US)
  Receive Date: 20160608
  Receipt Date: 20160608
  Transmission Date: 20160815
  Serious: No
  Sender: FDA-Public Use
  Company Number: US-BAYER-2016-109614

PATIENT
  Age: 20 Year
  Sex: Female

DRUGS (1)
  1. OCELLA [Suspect]
     Active Substance: DROSPIRENONE\ETHINYL ESTRADIOL
     Indication: CONTRACEPTION
     Dosage: UNK
     Route: 048
     Dates: start: 20160506

REACTIONS (3)
  - Dizziness [None]
  - Drug dose omission [None]
  - Headache [None]

NARRATIVE: CASE EVENT DATE: 201605
